FAERS Safety Report 12643385 (Version 1)
Quarter: 2016Q3

REPORT INFORMATION
  Report Type: Report from Study
  Country: BR (occurrence: BR)
  Receive Date: 20160811
  Receipt Date: 20160811
  Transmission Date: 20161109
  Serious: Yes (Death, Hospitalization)
  Sender: FDA-Public Use
  Company Number: BR-ROCHE-1788527

PATIENT
  Age: 53 Year
  Sex: Female
  Weight: 82.7 kg

DRUGS (20)
  1. CARBOPLATIN. [Suspect]
     Active Substance: CARBOPLATIN
     Indication: NON-SMALL CELL LUNG CANCER
     Dosage: TARGET AUC = 6 MG/ML/MIN (PER PROTOCOL)?MOST RECENT DOSE (827 MG) ADMINISTERED ON 15/JUN/2016, PRIOR
     Route: 042
     Dates: start: 20160615
  2. ATEZOLIZUMAB [Suspect]
     Active Substance: ATEZOLIZUMAB
     Indication: NON-SMALL CELL LUNG CANCER
     Dosage: MOST RECENT DOSE ADMINISTERED ON 15/JUN/2016, PRIOR TO THE EVENT?MOST RECENT DOSE ADMINISTERED ON 15
     Route: 042
     Dates: start: 20160615
  3. RANITIDINE. [Concomitant]
     Active Substance: RANITIDINE
     Indication: PREMEDICATION
     Route: 065
     Dates: start: 20160615, end: 20160615
  4. DIPIRONE [Concomitant]
     Active Substance: METAMIZOLE SODIUM
     Indication: HEADACHE
     Route: 065
     Dates: start: 20160709, end: 20160709
  5. DEXAMETHASONE. [Concomitant]
     Active Substance: DEXAMETHASONE
     Route: 065
     Dates: start: 20160720, end: 20160720
  6. RANITIDINE. [Concomitant]
     Active Substance: RANITIDINE
     Indication: VOMITING
     Route: 065
     Dates: start: 20160617
  7. DOMPERIDONA [Concomitant]
     Indication: VOMITING
     Route: 065
     Dates: start: 20160614
  8. DIAZEPAN [Concomitant]
     Active Substance: DIAZEPAM
     Indication: ANXIETY
     Route: 065
     Dates: start: 20160630, end: 20160709
  9. SEDILAX [Concomitant]
     Indication: CHEST PAIN
  10. RANITIDINE. [Concomitant]
     Active Substance: RANITIDINE
     Indication: DYSPEPSIA
     Route: 065
     Dates: start: 20160705, end: 20160709
  11. DEXCHLORPHENIRAMINE [Concomitant]
     Active Substance: DEXCHLORPHENIRAMINE
     Route: 065
     Dates: start: 20160720, end: 20160720
  12. DEXAMETHASONE. [Concomitant]
     Active Substance: DEXAMETHASONE
     Indication: PREMEDICATION
     Route: 065
     Dates: start: 20160615, end: 20160615
  13. PACLITAXEL. [Suspect]
     Active Substance: PACLITAXEL
     Indication: NON-SMALL CELL LUNG CANCER
     Dosage: DOSE PER PROTOCOL?MOST RECENT DOSE (400 MG) ADMINISTERED ON 15/JUN/2016, PRIOR TO THE EVENT?MOST REC
     Route: 042
     Dates: start: 20160615
  14. DEXAMETHASONE. [Concomitant]
     Active Substance: DEXAMETHASONE
     Route: 065
     Dates: start: 20160614
  15. RANITIDINE. [Concomitant]
     Active Substance: RANITIDINE
     Indication: VOMITING
     Route: 065
     Dates: start: 20160720, end: 20160720
  16. DIPIRONE [Concomitant]
     Active Substance: METAMIZOLE SODIUM
     Indication: PAIN
  17. ONDANSETRON [Concomitant]
     Active Substance: ONDANSETRON
     Indication: PREMEDICATION
     Route: 065
     Dates: start: 20160615, end: 20160615
  18. ONDANSETRON [Concomitant]
     Active Substance: ONDANSETRON
     Route: 065
     Dates: start: 20160720, end: 20160720
  19. DIPIRONE [Concomitant]
     Active Substance: METAMIZOLE SODIUM
     Indication: CHEST PAIN
     Route: 065
     Dates: start: 20160720, end: 20160720
  20. DEXCHLORPHENIRAMINE [Concomitant]
     Active Substance: DEXCHLORPHENIRAMINE
     Indication: PREMEDICATION
     Route: 065
     Dates: start: 20160615, end: 20160615

REACTIONS (3)
  - Pneumonitis [Recovered/Resolved]
  - Pneumonia [Recovered/Resolved]
  - Acute respiratory failure [Fatal]

NARRATIVE: CASE EVENT DATE: 20160630
